FAERS Safety Report 10104194 (Version 2)
Quarter: 2014Q3

REPORT INFORMATION
  Report Type: Other
  Country: US (occurrence: US)
  Receive Date: 20140424
  Receipt Date: 20140717
  Transmission Date: 20150326
  Serious: Yes (Other)
  Sender: FDA-Public Use
  Company Number: US-GSKPPD-2014GSK001376

PATIENT
  Sex: Male
  Weight: 132.11 kg

DRUGS (4)
  1. NORVASC [Concomitant]
     Active Substance: AMLODIPINE BESYLATE
  2. AVANDIA [Suspect]
     Active Substance: ROSIGLITAZONE MALEATE
     Indication: DIABETES MELLITUS
     Route: 048
     Dates: start: 2001
  3. LASIX [Concomitant]
     Active Substance: FUROSEMIDE
  4. TOPROL XL [Concomitant]
     Active Substance: METOPROLOL SUCCINATE

REACTIONS (1)
  - Atrial fibrillation [None]
